FAERS Safety Report 5265486-1 (Version None)
Quarter: 2007Q1

REPORT INFORMATION
  Report Type: 
  Country: None (occurrence: None)
  Receive Date: 20070314
  Receipt Date: 20070305
  Transmission Date: 20070707
  Serious: Yes (Hospitalization)
  Sender: FDA-Public Use
  Company Number: JP-SANOFI-SYNTHELABO-A01200508297

PATIENT
  Age: 64 Year
  Sex: Male

DRUGS (3)
  1. ISOVORIN [Suspect]
     Dosage: DOSE UNKNOWN
     Route: 041
     Dates: start: 20051121, end: 20051122
  2. OXALIPLATIN [Suspect]
     Indication: LARGE INTESTINE CARCINOMA
     Dosage: DOSE UNKNOWN
     Route: 041
     Dates: start: 20051121, end: 20051121
  3. FLUOROURACIL [Suspect]
     Dosage: DOSE UNKNOWN
     Route: 041
     Dates: start: 20051121, end: 20051122

REACTIONS (1)
  - CONVULSION [None]
